FAERS Safety Report 25345136 (Version 2)
Quarter: 2025Q2

REPORT INFORMATION
  Report Type: Spontaneous
  Country: DE (occurrence: DE)
  Receive Date: 20250522
  Receipt Date: 20250626
  Transmission Date: 20250717
  Serious: Yes (Other)
  Sender: BRISTOL-MYERS SQUIBB COMPANY
  Company Number: DE-BRISTOL-MYERS SQUIBB COMPANY-2025-069733

PATIENT
  Age: 53 Year
  Sex: Male

DRUGS (2)
  1. NIVOLUMAB [Suspect]
     Active Substance: NIVOLUMAB
     Indication: Uveal melanoma
     Dates: start: 202211
  2. IPILIMUMAB [Suspect]
     Active Substance: IPILIMUMAB
     Indication: Uveal melanoma
     Dates: start: 202211

REACTIONS (5)
  - Neuritis cranial [Unknown]
  - Myocarditis [Unknown]
  - Off label use [Unknown]
  - IIIrd nerve paralysis [Unknown]
  - VIth nerve paralysis [Unknown]

NARRATIVE: CASE EVENT DATE: 20221201
